FAERS Safety Report 23276319 (Version 1)
Quarter: 2023Q4

REPORT INFORMATION
  Report Type: Spontaneous
  Country: CN (occurrence: CN)
  Receive Date: 20231208
  Receipt Date: 20231208
  Transmission Date: 20240110
  Serious: Yes (Death, Life-Threatening, Other)
  Sender: FDA-Public Use
  Company Number: US-Emergent Biosolutions-23000529

PATIENT
  Age: 62 Year
  Sex: Male

DRUGS (4)
  1. BAT [Suspect]
     Active Substance: EQUINE BOTULINUM NEUROTOXIN A/B/C/D/E/F/G IMMUNE FAB2
     Indication: Botulism
     Dosage: 20000 UNIT, BID
     Route: 042
  2. BAT [Suspect]
     Active Substance: EQUINE BOTULINUM NEUROTOXIN A/B/C/D/E/F/G IMMUNE FAB2
     Dosage: 10000 UNIT, BID
     Route: 042
  3. ACTIVATED CHARCOAL [Concomitant]
     Active Substance: ACTIVATED CHARCOAL
     Indication: Botulism
     Dosage: UNK
     Route: 065
  4. PENICILLIN [Concomitant]
     Active Substance: PENICILLIN
     Indication: Botulism
     Dosage: UNK
     Route: 065

REACTIONS (1)
  - Cardiac arrest [Fatal]
